FAERS Safety Report 8994639 (Version 1)
Quarter: 2012Q4

REPORT INFORMATION
  Report Type: Spontaneous
  Country: US (occurrence: None)
  Receive Date: 20121228
  Receipt Date: 20121228
  Transmission Date: 20130627
  Serious: Yes (Other)
  Sender: FDA-Public Use
  Company Number: None

PATIENT
  Age: 37 Year
  Sex: Male

DRUGS (10)
  1. SAPHRIS [Suspect]
     Indication: INSOMNIA
  2. PRILOSEC [Concomitant]
  3. ADDERALL [Concomitant]
  4. ATIVAN [Concomitant]
  5. TRAMADOL [Concomitant]
  6. ZANAFLEX [Concomitant]
  7. EFFEXOR ER [Concomitant]
  8. WELLBUTRIN XL [Concomitant]
  9. LOPID [Concomitant]
  10. FLONASE [Concomitant]

REACTIONS (2)
  - Aggression [None]
  - Aggression [None]
